FAERS Safety Report 8745601 (Version 2)
Quarter: 2012Q4

REPORT INFORMATION
  Report Type: 
  Country: US (occurrence: US)
  Receive Date: 20120826
  Receipt Date: 20120913
  Transmission Date: 20130627
  Serious: Yes (Other)
  Sender: FDA-Public Use
  Company Number: US-009507513-1208USA007942

PATIENT

DRUGS (1)
  1. JANUVIA [Suspect]

REACTIONS (1)
  - Pancreatitis [Unknown]
